FAERS Safety Report 21695018 (Version 4)
Quarter: 2025Q3

REPORT INFORMATION
  Report Type: Report from Study
  Country: KR (occurrence: KR)
  Receive Date: 20221207
  Receipt Date: 20250918
  Transmission Date: 20251020
  Serious: Yes (Other)
  Sender: TAKEDA
  Company Number: KR-TAKEDA-2022TUS092829

PATIENT
  Age: 31 Year
  Sex: Female
  Weight: 48 kg

DRUGS (7)
  1. VEDOLIZUMAB [Suspect]
     Active Substance: VEDOLIZUMAB
     Indication: Colitis ulcerative
     Dates: start: 20210803, end: 20220223
  2. CALCIUM CARBONATE\CHOLECALCIFEROL [Concomitant]
     Active Substance: CALCIUM CARBONATE\CHOLECALCIFEROL
     Indication: Vitamin supplementation
     Dosage: UNK UNK, QD
     Dates: start: 20200106
  3. AZATHIOPRINE [Concomitant]
     Active Substance: AZATHIOPRINE
     Dosage: 25 MILLIGRAM, QD
     Dates: start: 20210706
  4. MESALAMINE [Concomitant]
     Active Substance: MESALAMINE
     Dosage: 2400 MILLIGRAM, BID
     Dates: start: 20191227
  5. Noltec [Concomitant]
     Indication: Gastritis
     Dosage: 20 MILLIGRAM, QD
     Dates: start: 20210803
  6. LOPERAMIDE [Concomitant]
     Active Substance: LOPERAMIDE
     Dosage: 2 MILLIGRAM, QD
     Dates: start: 20191227, end: 20210816
  7. PENTASA [Concomitant]
     Active Substance: MESALAMINE
     Indication: Supplementation therapy
     Dosage: 1 GRAM, BID
     Dates: start: 20211229

REACTIONS (1)
  - Rectal haemorrhage [Recovered/Resolved]

NARRATIVE: CASE EVENT DATE: 20211201
